FAERS Safety Report 4997025-4 (Version None)
Quarter: 2006Q1

REPORT INFORMATION
  Report Type: 
  Country: None (occurrence: None)
  Receive Date: 20060315
  Receipt Date: 20051216
  Transmission Date: 20060701
  Serious: Yes (Other)
  Sender: FDA-Public Use
  Company Number: 429282

PATIENT
  Age: 82 Year
  Sex: Female

DRUGS (4)
  1. BONIVA [Suspect]
     Indication: OSTEOPENIA
     Dosage: 150 MG 1 PER MONTH ORAL
     Route: 048
     Dates: start: 20051115, end: 20051215
  2. OGEN [Concomitant]
  3. ESTROPIPATE [Concomitant]
  4. FORTEO [Concomitant]

REACTIONS (1)
  - OEDEMA PERIPHERAL [None]
